FAERS Safety Report 8064554-9 (Version None)
Quarter: 2012Q1

REPORT INFORMATION
  Report Type: 
  Country: None (occurrence: None)
  Receive Date: 20120123
  Receipt Date: 20120116
  Transmission Date: 20120608
  Serious: Yes (Other)
  Sender: FDA-Public Use
  Company Number: US-US-EMD SERONO, INC.-7107544

PATIENT
  Sex: Female
  Weight: 81 kg

DRUGS (12)
  1. PRAVACHOL [Concomitant]
  2. PRILOSEC [Concomitant]
  3. ATENOLOL [Concomitant]
  4. FOLIC ACID [Concomitant]
  5. REBIF [Suspect]
     Indication: MULTIPLE SCLEROSIS
     Dates: start: 20110914
  6. ZETIA [Concomitant]
  7. PROZAC [Concomitant]
  8. GLUCTROL [Concomitant]
  9. SINGULAIR [Concomitant]
  10. NEURONTIN [Concomitant]
  11. VALIUM [Concomitant]
  12. TIZANIDINE HCL [Concomitant]

REACTIONS (3)
  - LUNG NEOPLASM MALIGNANT [None]
  - HEPATIC STEATOSIS [None]
  - GASTRIC DISORDER [None]
